FAERS Safety Report 9642183 (Version 2)
Quarter: 2013Q4

REPORT INFORMATION
  Report Type: Spontaneous
  Country: PT (occurrence: PT)
  Receive Date: 20131023
  Receipt Date: 20131031
  Transmission Date: 20140711
  Serious: Yes (Hospitalization, Other)
  Sender: FDA-Public Use
  Company Number: PT-AMGEN-PRTSP2013074723

PATIENT
  Age: 54 Year
  Sex: Male

DRUGS (2)
  1. ENBREL [Suspect]
     Indication: PSORIATIC ARTHROPATHY
     Dosage: 50 MG, WEEKLY
     Route: 058
     Dates: start: 20120604, end: 20130913
  2. NAPROXEN [Concomitant]
     Indication: PSORIATIC ARTHROPATHY
     Dosage: UNK, AS NEEDED
     Route: 048

REACTIONS (3)
  - Cholangitis [Recovering/Resolving]
  - Cholelithiasis [Recovering/Resolving]
  - Immunosuppression [Unknown]
